FAERS Safety Report 4593926-X (Version None)
Quarter: 2005Q1

REPORT INFORMATION
  Report Type: 
  Country: None (occurrence: None)
  Receive Date: 20050225
  Receipt Date: 20050211
  Transmission Date: 20050727
  Serious: Yes (Hospitalization)
  Sender: FDA-Public Use
  Company Number: FTD20050001

PATIENT
  Age: 69 Year
  Sex: Male

DRUGS (1)
  1. FAMOTIDINE [Suspect]
     Dates: start: 20040301, end: 20040602

REACTIONS (9)
  - ALANINE AMINOTRANSFERASE INCREASED [None]
  - ASPARTATE AMINOTRANSFERASE INCREASED [None]
  - EOSINOPHILIA [None]
  - ERYTHEMA MULTIFORME [None]
  - GAMMA-GLUTAMYLTRANSFERASE INCREASED [None]
  - HEPATIC FUNCTION ABNORMAL [None]
  - HYDROCEPHALUS [None]
  - MENTAL IMPAIRMENT [None]
  - TOXIC SKIN ERUPTION [None]
